FAERS Safety Report 14116462 (Version 2)
Quarter: 2017Q4

REPORT INFORMATION
  Report Type: Spontaneous
  Country: HR (occurrence: HR)
  Receive Date: 20171023
  Receipt Date: 20171127
  Transmission Date: 20180321
  Serious: Yes (Hospitalization)
  Sender: FDA-Public Use
  Company Number: HR-HIKMA PHARMACEUTICALS CO. LTD-2017HR014319

PATIENT

DRUGS (5)
  1. TRITACE [Concomitant]
     Active Substance: RAMIPRIL
     Dosage: 1,25 MG
     Route: 065
  2. BRUFEN                             /00109201/ [Concomitant]
     Active Substance: IBUPROFEN
     Route: 065
  3. ARAVA [Suspect]
     Active Substance: LEFLUNOMIDE
     Indication: RHEUMATOID ARTHRITIS
     Dosage: 200 MG, DAILY
     Route: 048
     Dates: start: 201410, end: 20170824
  4. INFLECTRA [Suspect]
     Active Substance: INFLIXIMAB-DYYB
     Indication: RHEUMATOID ARTHRITIS
     Dosage: 200 MG, DAILY
     Route: 042
     Dates: start: 201511, end: 20170727
  5. BYOL COR [Concomitant]
     Active Substance: BISOPROLOL FUMARATE
     Dosage: 1,25 MG
     Route: 065

REACTIONS (5)
  - Pustular psoriasis [Recovering/Resolving]
  - Dermatitis [Recovering/Resolving]
  - Skin exfoliation [Recovering/Resolving]
  - Rash pustular [Recovering/Resolving]
  - Rash [Recovering/Resolving]

NARRATIVE: CASE EVENT DATE: 20170810
